FAERS Safety Report 14418489 (Version 1)
Quarter: 2018Q1

REPORT INFORMATION
  Report Type: Spontaneous
  Country: ES (occurrence: ES)
  Receive Date: 20180122
  Receipt Date: 20180122
  Transmission Date: 20180509
  Serious: Yes (Other)
  Sender: FDA-Public Use
  Company Number: ES-BAYER-2017-036875

PATIENT
  Age: 67 Year
  Sex: Male

DRUGS (3)
  1. LEVOTHYROXINE SODIUM. [Concomitant]
     Active Substance: LEVOTHYROXINE SODIUM
  2. NEXAVAR [Suspect]
     Active Substance: SORAFENIB
     Indication: THYROID CANCER STAGE IV
  3. NEXAVAR [Suspect]
     Active Substance: SORAFENIB
     Indication: THYROID CANCER
     Dosage: 400 MG, BID
     Route: 048
     Dates: start: 201211

REACTIONS (2)
  - Diarrhoea [Recovering/Resolving]
  - Metastases to lung [None]
